FAERS Safety Report 8105671-4 (Version None)
Quarter: 2012Q1

REPORT INFORMATION
  Report Type: 
  Country: None (occurrence: None)
  Receive Date: 20120201
  Receipt Date: 20120118
  Transmission Date: 20120608
  Serious: Yes (Other)
  Sender: FDA-Public Use
  Company Number: PHHY2012US004931

PATIENT
  Age: 63 Year
  Sex: Male

DRUGS (13)
  1. CIPROFLOXACIN [Interacting]
     Dosage: UNK UKN, UNK
     Dates: start: 20110502, end: 20110526
  2. CYCLOSPORINE [Interacting]
     Indication: LUNG TRANSPLANT
     Dosage: UNK UKN, UNK
  3. OMEPRAZOLE [Concomitant]
     Dosage: UNK UKN, UNK
  4. EZETIMIBE [Concomitant]
     Dosage: 10 MG, DAILY
  5. PREDNISONE TAB [Concomitant]
     Indication: LUNG TRANSPLANT
     Dosage: 5 MG, DAILY
  6. METOPROLOL TARTRATE [Concomitant]
     Dosage: UNK UKN, UNK
  7. ITRACONAZOLE [Concomitant]
     Dosage: UNK UKN, UNK
  8. CIPROFLOXACIN [Suspect]
     Indication: PSEUDOMONAS INFECTION
     Dosage: 500 MG, BID
  9. AZATHIOPRINE [Concomitant]
     Indication: LUNG TRANSPLANT
     Dosage: 100 MG, DAILY
  10. SULFAMETHOXAZOLE AND TRIMETHOPRIM [Concomitant]
     Dosage: UNK UKN, UNK
  11. IPRATROPIUM BROMIDE [Concomitant]
     Dosage: UNK UKN, UNK
  12. ARFORMOTEROL TARTRATE [Concomitant]
     Dosage: UNK UKN, UNK
  13. SODIUM POLYSTYRENE SULFONATE [Concomitant]
     Dosage: 30 G/120 ML SORBITOL

REACTIONS (15)
  - MYALGIA [None]
  - BACK PAIN [None]
  - MUSCLE INJURY [None]
  - BLOOD PRESSURE INCREASED [None]
  - ASTHENIA [None]
  - HYPERKALAEMIA [None]
  - NAUSEA [None]
  - VOMITING [None]
  - RENAL FAILURE ACUTE [None]
  - ARTHRALGIA [None]
  - KIDNEY FIBROSIS [None]
  - DRUG INTERACTION [None]
  - MUSCULAR WEAKNESS [None]
  - MUSCULOSKELETAL PAIN [None]
  - FATIGUE [None]
